FAERS Safety Report 23411382 (Version 1)
Quarter: 2024Q1

REPORT INFORMATION
  Report Type: Spontaneous
  Country: US (occurrence: None)
  Receive Date: 20240116
  Receipt Date: 20240116
  Transmission Date: 20240410
  Serious: No
  Sender: FDA-Public Use
  Company Number: None

PATIENT
  Age: 56 Year
  Sex: Male

DRUGS (2)
  1. SYMTUZA [Suspect]
     Active Substance: COBICISTAT\DARUNAVIR\EMTRICITABINE\TENOFOVIR ALAFENAMIDE
     Dates: start: 20231017, end: 20231024
  2. DESCOVY [Suspect]
     Active Substance: EMTRICITABINE\TENOFOVIR ALAFENAMIDE FUMARATE
     Dates: start: 20231024, end: 20231205

REACTIONS (6)
  - Product substitution issue [None]
  - Pathogen resistance [None]
  - Gastrointestinal disorder [None]
  - Flatulence [None]
  - Refusal of treatment by patient [None]
  - Abdominal discomfort [None]

NARRATIVE: CASE EVENT DATE: 20231024
